FAERS Safety Report 8599654-8 (Version None)
Quarter: 2012Q3

REPORT INFORMATION
  Report Type: 
  Country: None (occurrence: None)
  Receive Date: 20120816
  Receipt Date: 20120803
  Transmission Date: 20120928
  Serious: Yes (Hospitalization, Other)
  Sender: FDA-Public Use
  Company Number: DE-FRI-1000029976

PATIENT
  Sex: Male
  Weight: 72 kg

DRUGS (2)
  1. ESCITALOPRAM [Suspect]
     Indication: FRONTOTEMPORAL DEMENTIA
     Dosage: 10 MG
     Route: 048
     Dates: start: 20120101, end: 20120210
  2. HOMEOPATHIC PREPARATION [Suspect]

REACTIONS (11)
  - PROTEIN TOTAL DECREASED [None]
  - GAMMA-GLUTAMYLTRANSFERASE INCREASED [None]
  - JAUNDICE [None]
  - BLOOD ALKALINE PHOSPHATASE INCREASED [None]
  - BLOOD BILIRUBIN INCREASED [None]
  - URINE COLOUR ABNORMAL [None]
  - OFF LABEL USE [None]
  - TRANSAMINASES INCREASED [None]
  - SERUM FERRITIN INCREASED [None]
  - ASPARTATE AMINOTRANSFERASE INCREASED [None]
  - ALANINE AMINOTRANSFERASE INCREASED [None]
